FAERS Safety Report 21400975 (Version 1)
Quarter: 2022Q4

REPORT INFORMATION
  Report Type: Report from Study
  Country: US (occurrence: US)
  Receive Date: 20221003
  Receipt Date: 20221003
  Transmission Date: 20230112
  Serious: Yes (Hospitalization, Other)
  Sender: FDA-Public Use
  Company Number: US-BRISTOL-MYERS SQUIBB COMPANY-2022-022209

PATIENT
  Age: 55 Year
  Sex: Female
  Weight: 76.2 kg

DRUGS (7)
  1. REVLIMID [Suspect]
     Active Substance: LENALIDOMIDE
     Indication: Plasma cell myeloma in remission
     Dosage: EVERY 24 HRS
     Route: 048
     Dates: start: 20211112
  2. REVLIMID [Suspect]
     Active Substance: LENALIDOMIDE
     Route: 048
     Dates: start: 20211112
  3. ASPIRIN [Concomitant]
     Active Substance: ASPIRIN
     Indication: Product used for unknown indication
     Route: 065
  4. ZOLEDRONIC ACID/ZENTIVA [Concomitant]
     Indication: Product used for unknown indication
     Route: 065
  5. DEXAVET [DEXAMETHASONE] [Concomitant]
     Indication: Product used for unknown indication
     Route: 065
  6. ACYCLOVIR DENK [Concomitant]
     Indication: Product used for unknown indication
     Route: 065
  7. STOOL SOFTENER (DOCUSATE) [Concomitant]
     Active Substance: DOCUSATE
     Indication: Product used for unknown indication
     Route: 065

REACTIONS (4)
  - Bone pain [Recovering/Resolving]
  - Arthralgia [Recovering/Resolving]
  - Plasma cell myeloma recurrent [Unknown]
  - Pain [Unknown]
